FAERS Safety Report 9112569 (Version 2)
Quarter: 2013Q1

REPORT INFORMATION
  Report Type: Report from Study
  Country: US (occurrence: US)
  Receive Date: 20130211
  Receipt Date: 20130311
  Transmission Date: 20140127
  Serious: Yes (Death)
  Sender: FDA-Public Use
  Company Number: US-ASTELLAS-2013US001415

PATIENT
  Sex: Male
  Weight: 106 kg

DRUGS (1)
  1. ERLOTINIB TABLET [Suspect]
     Indication: GLIOBLASTOMA MULTIFORME
     Dosage: 150 MG, UID/QD
     Route: 048
     Dates: start: 20121012

REACTIONS (2)
  - Off label use [Unknown]
  - Glioblastoma multiforme [Fatal]
